FAERS Safety Report 9312710 (Version 1)
Quarter: 2013Q2

REPORT INFORMATION
  Report Type: Spontaneous
  Country: MX (occurrence: MX)
  Receive Date: 20130528
  Receipt Date: 20130528
  Transmission Date: 20140414
  Serious: Yes (Other)
  Sender: FDA-Public Use
  Company Number: MX-ASTRAZENECA-2013SE35601

PATIENT
  Age: 647 Month
  Sex: Male
  Weight: 64 kg

DRUGS (5)
  1. BRILINTA [Suspect]
     Route: 048
     Dates: start: 201206, end: 201210
  2. PLAVIX [Concomitant]
     Indication: CEREBROVASCULAR ACCIDENT
     Route: 048
     Dates: start: 2008, end: 201206
  3. PLAVIX [Concomitant]
     Indication: CEREBROVASCULAR ACCIDENT
     Route: 048
     Dates: start: 201210
  4. CRESTOR [Concomitant]
     Indication: DYSLIPIDAEMIA
     Route: 048
     Dates: start: 2008
  5. GLIBENCLAMIDE/METFORMIN [Concomitant]
     Indication: TYPE 2 DIABETES MELLITUS
     Route: 048
     Dates: start: 2010

REACTIONS (2)
  - Pelvic venous thrombosis [Recovered/Resolved]
  - Anxiety [Recovered/Resolved]
